FAERS Safety Report 7313299-9 (Version None)
Quarter: 2011Q1

REPORT INFORMATION
  Report Type: 
  Country: None (occurrence: None)
  Receive Date: 20110225
  Receipt Date: 20110223
  Transmission Date: 20110831
  Serious: No
  Sender: FDA-Public Use
  Company Number: US-TEVA-268313USA

PATIENT
  Age: 84 Year
  Sex: Male

DRUGS (2)
  1. AZITHROMYCIN [Concomitant]
  2. ALBUTEROL SULFATE AUTOHALER [Suspect]
     Dosage: 2 PUFFS
     Route: 055
     Dates: start: 20110218, end: 20110222

REACTIONS (2)
  - TREMOR [None]
  - DYSKINESIA [None]
